FAERS Safety Report 4973983-9 (Version None)
Quarter: 2006Q2

REPORT INFORMATION
  Report Type: 
  Country: None (occurrence: None)
  Receive Date: 20060417
  Receipt Date: 20060405
  Transmission Date: 20061013
  Serious: Yes (Death, Hospitalization)
  Sender: FDA-Public Use
  Company Number: US-JNJFOC-20060101769

PATIENT
  Sex: Female
  Weight: 48.76 kg

DRUGS (9)
  1. DURAGESIC-100 [Suspect]
     Route: 062
  2. PREVACID [Concomitant]
  3. REGLAN [Concomitant]
     Dosage: BEFORE MEALS AND BEDTIME
  4. NEXIUM [Concomitant]
  5. VICODIN [Concomitant]
  6. VICODIN [Concomitant]
     Indication: PAIN
     Dosage: AS NECESSARY
  7. LOMOTIL [Concomitant]
  8. LOMOTIL [Concomitant]
     Dosage: AS NECESSARY
  9. MICRO-K [Concomitant]

REACTIONS (19)
  - ACUTE PRERENAL FAILURE [None]
  - CHEST X-RAY ABNORMAL [None]
  - CONTUSION [None]
  - DEATH [None]
  - DEHYDRATION [None]
  - DIVERTICULUM DUODENAL [None]
  - DIZZINESS [None]
  - FALL [None]
  - GASTRITIS HAEMORRHAGIC [None]
  - GASTROOESOPHAGEAL REFLUX DISEASE [None]
  - HAEMATOCRIT DECREASED [None]
  - HAEMOGLOBIN DECREASED [None]
  - HIATUS HERNIA [None]
  - ILEUS [None]
  - LETHARGY [None]
  - MALLORY-WEISS SYNDROME [None]
  - PNEUMONIA ASPIRATION [None]
  - PRESBYOESOPHAGUS [None]
  - SMALL INTESTINAL OBSTRUCTION [None]
